FAERS Safety Report 16932218 (Version 1)
Quarter: 2019Q4

REPORT INFORMATION
  Report Type: Spontaneous
  Country: US (occurrence: US)
  Receive Date: 20191017
  Receipt Date: 20191017
  Transmission Date: 20200122
  Serious: Yes (Other)
  Sender: FDA-Public Use
  Company Number: US-JNJFOC-20191012711

PATIENT
  Sex: Male

DRUGS (2)
  1. XARELTO [Suspect]
     Active Substance: RIVAROXABAN
     Route: 048
     Dates: start: 2019, end: 20190701
  2. XARELTO [Suspect]
     Active Substance: RIVAROXABAN
     Indication: THROMBOSIS
     Route: 048
     Dates: start: 2019, end: 2019

REACTIONS (6)
  - Neoplasm [Unknown]
  - Anaemia [Unknown]
  - Haematochezia [Not Recovered/Not Resolved]
  - Ulcer [Recovered/Resolved]
  - Haemorrhoids [Unknown]
  - Polyp [Unknown]
